FAERS Safety Report 13363560 (Version 2)
Quarter: 2017Q1

REPORT INFORMATION
  Report Type: Report from Study
  Country: US (occurrence: US)
  Receive Date: 20170323
  Receipt Date: 20170331
  Transmission Date: 20170429
  Serious: Yes (Death)
  Sender: FDA-Public Use
  Company Number: US-PFIZER INC-2017119769

PATIENT

DRUGS (4)
  1. VINCRISTINE SULFATE. [Suspect]
     Active Substance: VINCRISTINE SULFATE
     Indication: HODGKIN^S DISEASE
     Dosage: UNK UNK, CYCLIC
  2. PROCARBAZINE /00091702/ [Suspect]
     Active Substance: PROCARBAZINE
     Indication: HODGKIN^S DISEASE
     Dosage: UNK UNK, CYCLIC
  3. MECHLORETHAMINE [Suspect]
     Active Substance: MECHLORETHAMINE
     Indication: HODGKIN^S DISEASE
     Dosage: UNK UNK, CYCLIC
  4. PREDNISONE. [Suspect]
     Active Substance: PREDNISONE
     Indication: HODGKIN^S DISEASE
     Dosage: UNK UNK, CYCLIC

REACTIONS (3)
  - Second primary malignancy [Fatal]
  - Acute myeloid leukaemia [Fatal]
  - Myelodysplastic syndrome [Fatal]
